FAERS Safety Report 5381021-1 (Version None)
Quarter: 2007Q3

REPORT INFORMATION
  Report Type: 
  Country: None (occurrence: None)
  Receive Date: 20070706
  Receipt Date: 20070702
  Transmission Date: 20080115
  Serious: Yes (Hospitalization)
  Sender: FDA-Public Use
  Company Number: BE-ABBOTT-06P-013-0354054-00

PATIENT
  Sex: Female

DRUGS (6)
  1. HUMIRA [Suspect]
     Indication: RHEUMATOID ARTHRITIS
     Dates: start: 20060423, end: 20061111
  2. HUMIRA [Suspect]
     Dates: end: 20070110
  3. BISOPROLOL [Concomitant]
     Indication: DRUG USE FOR UNKNOWN INDICATION
  4. PRAVASINC [Concomitant]
     Indication: DRUG USE FOR UNKNOWN INDICATION
  5. TRANSCODINE [Concomitant]
     Indication: DRUG USE FOR UNKNOWN INDICATION
  6. METHYLPREDNISOLONE [Concomitant]
     Indication: DRUG USE FOR UNKNOWN INDICATION

REACTIONS (5)
  - MALAISE [None]
  - NAUSEA [None]
  - PRESYNCOPE [None]
  - SYNCOPE [None]
  - VERTIGO [None]
